FAERS Safety Report 11191358 (Version 1)
Quarter: 2015Q2

REPORT INFORMATION
  Report Type: Report from Study
  Country: ES (occurrence: ES)
  Receive Date: 20150616
  Receipt Date: 20150616
  Transmission Date: 20150821
  Serious: Yes (Other)
  Sender: FDA-Public Use
  Company Number: PHHY2014ES027599

PATIENT
  Age: 40 Year
  Sex: Female

DRUGS (2)
  1. ICL670A [Suspect]
     Active Substance: DEFERASIROX
     Indication: HAEMOSIDEROSIS
     Route: 048
     Dates: start: 20120131, end: 20140805
  2. RIBAVIRIN. [Suspect]
     Active Substance: RIBAVIRIN
     Indication: HEPATITIS C
     Route: 065

REACTIONS (2)
  - Transfusion reaction [Unknown]
  - Neutropenia [Recovered/Resolved]

NARRATIVE: CASE EVENT DATE: 20140109
